FAERS Safety Report 18673614 (Version 2)
Quarter: 2020Q4

REPORT INFORMATION
  Report Type: Spontaneous
  Country: US (occurrence: US)
  Receive Date: 20201229
  Receipt Date: 20201230
  Transmission Date: 20210114
  Serious: Yes (Hospitalization)
  Sender: FDA-Public Use
  Company Number: US-009507513-2012USA011565

PATIENT
  Age: 76 Year
  Sex: Male

DRUGS (4)
  1. PACLITAXEL ALBUMIN [Concomitant]
     Active Substance: PACLITAXEL
  2. KEYTRUDA [Suspect]
     Active Substance: PEMBROLIZUMAB
     Indication: NON-SMALL CELL LUNG CANCER
     Dosage: 200 MILLIGRAM, Q3W
     Route: 042
     Dates: start: 20200901
  3. CARBOPLATIN. [Concomitant]
     Active Substance: CARBOPLATIN
  4. PROSCAR [Concomitant]
     Active Substance: FINASTERIDE

REACTIONS (3)
  - Abdominal pain upper [Recovered/Resolved]
  - Malaise [Recovered/Resolved]
  - Feeling abnormal [Recovered/Resolved]

NARRATIVE: CASE EVENT DATE: 2020
